FAERS Safety Report 6804809-6 (Version None)
Quarter: 2010Q2

REPORT INFORMATION
  Report Type: 
  Country: None (occurrence: None)
  Receive Date: 20100628
  Receipt Date: 20070810
  Transmission Date: 20101027
  Serious: No
  Sender: FDA-Public Use
  Company Number: US-PFIZER INC-2007050022

PATIENT
  Sex: Male

DRUGS (2)
  1. XALATAN [Suspect]
     Dates: start: 20020101
  2. STATINS [Suspect]

REACTIONS (2)
  - ARTHRALGIA [None]
  - MYALGIA [None]
